FAERS Safety Report 9295465 (Version 1)
Quarter: 2013Q2

REPORT INFORMATION
  Report Type: Spontaneous
  Country: IT (occurrence: IT)
  Receive Date: 20130517
  Receipt Date: 20130517
  Transmission Date: 20140414
  Serious: Yes (Hospitalization)
  Sender: FDA-Public Use
  Company Number: IT-PFIZER INC-2013150605

PATIENT
  Age: 73 Year
  Sex: Male

DRUGS (4)
  1. CISPLATIN [Suspect]
     Indication: LARYNGEAL CANCER STAGE I
     Dosage: 700 MG, CYCLIC
     Route: 042
     Dates: start: 20130118, end: 20130118
  2. XELODA [Suspect]
     Indication: LARYNGEAL CANCER STAGE I
     Dosage: 150 MG, CYCLIC
     Route: 042
     Dates: start: 20130118, end: 20130118
  3. CETUXIMAB [Suspect]
     Indication: LARYNGEAL CANCER STAGE I
     Dosage: 350 MG, CYCLIC
     Route: 042
     Dates: start: 20130118, end: 20130118
  4. INSULIN [Concomitant]
     Indication: DIABETES MELLITUS

REACTIONS (2)
  - Anaemia [Recovering/Resolving]
  - Haematuria [Recovering/Resolving]
